FAERS Safety Report 5922685-0 (Version None)
Quarter: 2008Q4

REPORT INFORMATION
  Report Type: 
  Country: None (occurrence: None)
  Receive Date: 20081017
  Receipt Date: 20081006
  Transmission Date: 20090506
  Serious: Yes (Death)
  Sender: FDA-Public Use
  Company Number: TW-ELI_LILLY_AND_COMPANY-TW200810001019

PATIENT
  Age: 60 Year
  Sex: Male

DRUGS (2)
  1. ZYPREXA [Suspect]
     Indication: SCHIZOPHRENIA
     Dosage: 10 MG, UNK
     Route: 030
  2. MIDAZOLAM HCL [Concomitant]
     Indication: HALLUCINATION
     Dosage: 15 MG, UNK

REACTIONS (2)
  - DEATH [None]
  - HEART RATE DECREASED [None]
